FAERS Safety Report 7050205-9 (Version None)
Quarter: 2010Q4

REPORT INFORMATION
  Report Type: 
  Country: None (occurrence: None)
  Receive Date: 20101018
  Receipt Date: 20101011
  Transmission Date: 20110411
  Serious: Yes (Other)
  Sender: FDA-Public Use
  Company Number: US-ALLERGAN-1013079US

PATIENT
  Age: 63 Year
  Sex: Female

DRUGS (3)
  1. RESTASIS [Suspect]
     Indication: DRY EYE
     Dosage: 1 GTT, BID
     Route: 047
     Dates: start: 20100101, end: 20100901
  2. DOXYCYCLINE [Suspect]
     Indication: BLEPHARITIS
  3. TRAVATAN Z [Concomitant]

REACTIONS (7)
  - DRUG INEFFECTIVE [None]
  - DYSGEUSIA [None]
  - DYSPHAGIA [None]
  - EYE IRRITATION [None]
  - RASH [None]
  - SWOLLEN TONGUE [None]
  - TONGUE DISCOLOURATION [None]
